FAERS Safety Report 9783325 (Version 1)
Quarter: 2013Q4

REPORT INFORMATION
  Report Type: Spontaneous
  Country: US (occurrence: US)
  Receive Date: 20131226
  Receipt Date: 20131226
  Transmission Date: 20140711
  Serious: Yes (Hospitalization)
  Sender: FDA-Public Use
  Company Number: US-BAYER-2013-156621

PATIENT
  Age: 46 Year
  Sex: Female
  Weight: 53 kg

DRUGS (6)
  1. YASMIN [Suspect]
  2. TOPAMAX [Concomitant]
     Dosage: 50 MG, UNK
  3. BENADRYL [Concomitant]
  4. IBUPROFEN [Concomitant]
  5. COLAZAL [Concomitant]
  6. DEXTROAMPHETAMINE [Concomitant]
     Dosage: 10 MG, BID

REACTIONS (2)
  - Pulmonary embolism [None]
  - Gallbladder disorder [None]
